FAERS Safety Report 5480838-2 (Version None)
Quarter: 2007Q4

REPORT INFORMATION
  Report Type: 
  Country: None (occurrence: None)
  Receive Date: 20071009
  Receipt Date: 20071002
  Transmission Date: 20080405
  Serious: Yes (Other)
  Sender: FDA-Public Use
  Company Number: KE-BOEHRINGER INGELHEIM PHARMACEUTICALS, INC.-2007-DE-05904GD

PATIENT

DRUGS (3)
  1. NEVIRAPINE [Suspect]
     Indication: HIV INFECTION
     Dosage: 240 MG/M2
     Route: 048
  2. ZIDOVUDINE [Suspect]
     Indication: HIV INFECTION
     Dosage: 360 MG/M2
     Route: 048
  3. LAMIVUDINE [Suspect]
     Indication: HIV INFECTION
     Dosage: 8 MG/KG
     Route: 048

REACTIONS (2)
  - IMMUNE SYSTEM DISORDER [None]
  - TUBERCULOSIS [None]
